FAERS Safety Report 6442821-X (Version None)
Quarter: 2009Q4

REPORT INFORMATION
  Report Type: 
  Country: None (occurrence: None)
  Receive Date: 20091112
  Receipt Date: 20091102
  Transmission Date: 20100525
  Serious: Yes (Hospitalization)
  Sender: FDA-Public Use
  Company Number: 2009SP033944

PATIENT
  Age: 61 Year
  Sex: Male

DRUGS (8)
  1. REMERON [Suspect]
     Indication: MAJOR DEPRESSION
     Dosage: 30 MG;QD
  2. ZYPREXA [Suspect]
     Indication: MAJOR DEPRESSION
     Dosage: 5 MG;QD
  3. EFFEXOR [Suspect]
     Indication: MAJOR DEPRESSION
     Dosage: 75 MG;QD
  4. DUPHALAC [Concomitant]
  5. VALPROATE SODIUM [Concomitant]
  6. CIPROXIN [Concomitant]
  7. VIVAL [Concomitant]
  8. IMOVANE [Concomitant]

REACTIONS (1)
  - SEROTONIN SYNDROME [None]
